FAERS Safety Report 4770664-1 (Version None)
Quarter: 2005Q3

REPORT INFORMATION
  Report Type: 
  Country: None (occurrence: None)
  Receive Date: 20050915
  Receipt Date: 20050907
  Transmission Date: 20060218
  Serious: Yes (Death, Hospitalization)
  Sender: FDA-Public Use
  Company Number: US-JNJFOC-20050902211

PATIENT
  Age: 40 Year
  Sex: Female

DRUGS (4)
  1. ACETAMINOPHEN [Suspect]
     Route: 048
  2. ACETAMINOPHEN [Suspect]
     Indication: DRUG USE FOR UNKNOWN INDICATION
     Route: 048
  3. MULTIPLE PAIN MEDICATIONS [Concomitant]
  4. ANTIDEPRESSANTS [Concomitant]

REACTIONS (9)
  - ACUTE RESPIRATORY DISTRESS SYNDROME [None]
  - COMA [None]
  - DRUG TOXICITY [None]
  - ELECTROCARDIOGRAM QRS COMPLEX PROLONGED [None]
  - HEPATIC FAILURE [None]
  - HYPOTENSION [None]
  - LOSS OF CONSCIOUSNESS [None]
  - SINUS TACHYCARDIA [None]
  - UNRESPONSIVE TO VERBAL STIMULI [None]
